FAERS Safety Report 8508828-3 (Version None)
Quarter: 2012Q3

REPORT INFORMATION
  Report Type: 
  Country: None (occurrence: None)
  Receive Date: 20120713
  Receipt Date: 20120419
  Transmission Date: 20120928
  Serious: Yes (Life-Threatening, Hospitalization)
  Sender: FDA-Public Use
  Company Number: US-PFIZER INC-2012166239

PATIENT
  Age: 69 Year
  Sex: Female

DRUGS (3)
  1. THIORIDAZINE HCL [Suspect]
     Dosage: UNK
  2. ATENOLOL [Suspect]
     Dosage: UNK
     Route: 048
  3. AMLODIPINE BESYLATE [Suspect]
     Dosage: UNK
     Route: 048

REACTIONS (5)
  - MULTIPLE DRUG OVERDOSE [None]
  - SHOCK [None]
  - LETHARGY [None]
  - SINUS BRADYCARDIA [None]
  - HYPOTENSION [None]
